FAERS Safety Report 11850119 (Version 1)
Quarter: 2015Q4

REPORT INFORMATION
  Report Type: Spontaneous
  Country: US (occurrence: US)
  Receive Date: 20151218
  Receipt Date: 20151218
  Transmission Date: 20160305
  Serious: No
  Sender: FDA-Public Use
  Company Number: US-JNJFOC-20151112382

PATIENT
  Age: 65 Year
  Sex: Female
  Weight: 81.65 kg

DRUGS (1)
  1. TYLENOL EXTRA STRENGTH [Suspect]
     Active Substance: ACETAMINOPHEN
     Indication: CHEST PAIN
     Dosage: 1-2 CAPLETS, EVERY 3-5 HOURS
     Route: 048
     Dates: start: 20151109

REACTIONS (3)
  - Product use issue [Unknown]
  - Overdose [Unknown]
  - Drug ineffective for unapproved indication [Unknown]
